FAERS Safety Report 25528039 (Version 1)
Quarter: 2025Q3

REPORT INFORMATION
  Report Type: Spontaneous
  Country: US (occurrence: US)
  Receive Date: 20250708
  Receipt Date: 20250708
  Transmission Date: 20251021
  Serious: No
  Sender: STRIDES
  Company Number: US-STRIDES ARCOLAB LIMITED-2024SP010477

PATIENT
  Age: 87 Year
  Sex: Male

DRUGS (10)
  1. VERAPAMIL [Suspect]
     Active Substance: VERAPAMIL HYDROCHLORIDE
     Indication: Atrial flutter
     Route: 048
  2. VERAPAMIL [Suspect]
     Active Substance: VERAPAMIL HYDROCHLORIDE
     Indication: Ventricular tachycardia
  3. DRONEDARONE [Concomitant]
     Active Substance: DRONEDARONE
     Indication: Atrial flutter
     Route: 065
  4. DRONEDARONE [Concomitant]
     Active Substance: DRONEDARONE
     Indication: Ventricular tachycardia
  5. SOTALOL [Concomitant]
     Active Substance: SOTALOL
     Indication: Atrial flutter
     Route: 065
  6. SOTALOL [Concomitant]
     Active Substance: SOTALOL
     Indication: Ventricular tachycardia
  7. AMIODARONE [Concomitant]
     Active Substance: AMIODARONE
     Indication: Atrial flutter
     Route: 065
  8. AMIODARONE [Concomitant]
     Active Substance: AMIODARONE
     Indication: Ventricular tachycardia
  9. RIVAROXABAN [Concomitant]
     Active Substance: RIVAROXABAN
     Indication: Product used for unknown indication
     Route: 065
  10. RIVAROXABAN [Concomitant]
     Active Substance: RIVAROXABAN
     Route: 065

REACTIONS (2)
  - Hypotension [Unknown]
  - Off label use [Unknown]
